FAERS Safety Report 13555256 (Version 1)
Quarter: 2017Q2

REPORT INFORMATION
  Report Type: Spontaneous
  Country: JP (occurrence: JP)
  Receive Date: 20170517
  Receipt Date: 20170517
  Transmission Date: 20170830
  Serious: Yes (Other)
  Sender: FDA-Public Use
  Company Number: JP-IMPAX LABORATORIES, INC-2017-IPXL-01321

PATIENT
  Age: 73 Year
  Sex: Male

DRUGS (1)
  1. CLINDAMYCIN HYDROCHLORIDE. [Suspect]
     Active Substance: CLINDAMYCIN HYDROCHLORIDE
     Indication: LUNG CONSOLIDATION
     Dosage: 600 MG, 2 /DAY
     Route: 065

REACTIONS (2)
  - Actinomycotic pulmonary infection [Recovering/Resolving]
  - Lung consolidation [Recovering/Resolving]
